FAERS Safety Report 18893725 (Version 2)
Quarter: 2021Q2

REPORT INFORMATION
  Report Type: Report from Study
  Country: FR (occurrence: FR)
  Receive Date: 20210215
  Receipt Date: 20210406
  Transmission Date: 20210717
  Serious: Yes (Other)
  Sender: FDA-Public Use
  Company Number: FR-ROCHE-2764495

PATIENT
  Age: 53 Year
  Sex: Male
  Weight: 75 kg

DRUGS (16)
  1. OCRELIZUMAB. [Suspect]
     Active Substance: OCRELIZUMAB
     Dosage: FURTHER ADMINISTRATIONS OF OPEN LABEL OCRELIZUMAB ON: 19/APR/2017, 11/OCT/2017, 21/MAR/2018, 05/SEP/
     Route: 042
     Dates: start: 20161102
  2. KARDEGIC [Concomitant]
     Active Substance: ASPIRIN DL-LYSINE
     Dates: start: 20201002, end: 20201118
  3. OCRELIZUMAB. [Suspect]
     Active Substance: OCRELIZUMAB
     Dosage: TWO IV INFUSIONS SEPARATED BY 14 DAYS AT A SCHEDULED INTERVAL OF EVERY 24 WEEKS UP TO AT LEAST 120 W
     Route: 042
     Dates: start: 20130220
  4. OCRELIZUMAB. [Suspect]
     Active Substance: OCRELIZUMAB
     Indication: PRIMARY PROGRESSIVE MULTIPLE SCLEROSIS
     Dosage: FURTHER ADMINISTRATIONS OF OPEN LABEL OCRELIZUMAB ON: 16/DEC/2015, 18/MAY/2016, 01/JUN/2016
     Route: 042
     Dates: start: 20151202
  5. MIOREL (FRANCE) [Concomitant]
     Active Substance: METHOCARBAMOL
     Indication: BACK PAIN
     Dates: start: 20170922, end: 20171008
  6. PERMIXON [Concomitant]
     Active Substance: HERBALS\SAW PALMETTO
     Dates: start: 20160521
  7. POLARAMINE [Concomitant]
     Active Substance: DEXCHLORPHENIRAMINE MALEATE
     Indication: PREMEDICATION
     Dosage: FURTHER ADMINISTRATIONS ON: 05/APR/2012, 06/SEP/2012, 18/SEP/2012, 20/FEB/2012, 06/MAR/2013, 06/AUG/
     Dates: start: 20120320
  8. INIPOMP [Concomitant]
     Active Substance: PANTOPRAZOLE SODIUM
     Dates: start: 20171120
  9. METHYLPREDNISOLONE. [Concomitant]
     Active Substance: METHYLPREDNISOLONE
     Indication: PREMEDICATION
     Dosage: FURTHER ADMINISTRATIONS ON: 05/APR/2012, 06/SEP/2012, 18/SEP/2012, 20/FEB/2012, 06/MAR/2013, 06/AUG/
     Dates: start: 20120320
  10. PARACETAMOL [Concomitant]
     Active Substance: ACETAMINOPHEN
     Indication: PREMEDICATION
     Dosage: FURTHER ADMINISTRATIONS ON: 05/APR/2012, 06/SEP/2012, 18/SEP/2012, 20/FEB/2012, 06/MAR/2013, 06/AUG/
     Dates: start: 20120320
  11. TAMSULOSINE [Concomitant]
     Active Substance: TAMSULOSIN HYDROCHLORIDE
     Dates: start: 20190515
  12. SOLUPRED (FRANCE) [Concomitant]
     Active Substance: PREDNISOLONE SODIUM METAZOATE
     Dates: start: 20200919, end: 20200919
  13. PERFALGAN [Concomitant]
     Active Substance: ACETAMINOPHEN
     Indication: PREMEDICATION
     Dosage: FURTHER ADMINISTRATIONS ON: 05/APR/2012, 06/SEP/2012, 18/SEP/2012, 20/FEB/2012, 06/MAR/2013, 06/AUG/
     Dates: start: 20120320
  14. SOLUPRED (FRANCE) [Concomitant]
     Active Substance: PREDNISOLONE SODIUM METAZOATE
     Dates: start: 20200920, end: 20200921
  15. LYRICA [Concomitant]
     Active Substance: PREGABALIN
     Indication: NECK PAIN
     Dates: start: 20180419, end: 20180511
  16. OCRELIZUMAB. [Suspect]
     Active Substance: OCRELIZUMAB
     Indication: PRIMARY PROGRESSIVE MULTIPLE SCLEROSIS
     Dosage: TWO IV INFUSIONS SEPARATED BY 14 DAYS AT A SCHEDULED INTERVAL OF EVERY 24 WEEKS UP TO AT LEAST 120 W
     Route: 042
     Dates: start: 20120320

REACTIONS (1)
  - Cerebrovascular accident [Recovered/Resolved]

NARRATIVE: CASE EVENT DATE: 20200918
